FAERS Safety Report 19180164 (Version 1)
Quarter: 2021Q2

REPORT INFORMATION
  Report Type: Spontaneous
  Country: US (occurrence: US)
  Receive Date: 20210426
  Receipt Date: 20210426
  Transmission Date: 20210717
  Serious: Yes (Other)
  Sender: FDA-Public Use
  Company Number: None

PATIENT
  Age: 46 Year
  Sex: Female
  Weight: 55.8 kg

DRUGS (23)
  1. DEXAMETHASONE. [Concomitant]
     Active Substance: DEXAMETHASONE
  2. DOMPERIDONE [Concomitant]
     Active Substance: DOMPERIDONE
  3. METOCLOPRAMIDE. [Concomitant]
     Active Substance: METOCLOPRAMIDE
  4. LEVOTHYROXINE. [Concomitant]
     Active Substance: LEVOTHYROXINE
  5. CONCERTA [Concomitant]
     Active Substance: METHYLPHENIDATE HYDROCHLORIDE
  6. CASIRIVIMAB + IMDEVIMAB [Suspect]
     Active Substance: CASIRIVIMAB\IMDEVIMAB
     Indication: COVID-19
     Dosage: ?          OTHER FREQUENCY:ONCE;?
     Route: 042
  7. MIDODRINE [Concomitant]
     Active Substance: MIDODRINE
  8. PROTONIX [Concomitant]
     Active Substance: PANTOPRAZOLE SODIUM
  9. CYCLOBENZAPRINE. [Concomitant]
     Active Substance: CYCLOBENZAPRINE
  10. METHOTREXATE. [Concomitant]
     Active Substance: METHOTREXATE
  11. EPIPEN [Concomitant]
     Active Substance: EPINEPHRINE
  12. AJOVY [Concomitant]
     Active Substance: FREMANEZUMAB-VFRM
  13. ALBUTEROL. [Concomitant]
     Active Substance: ALBUTEROL
  14. DOXYCYCLINE. [Concomitant]
     Active Substance: DOXYCYCLINE
  15. ESTRADIOL?NORETHINDRONE [Concomitant]
  16. LEVOMEFOLATE [Concomitant]
  17. PROCHLORPERAZINE. [Concomitant]
     Active Substance: PROCHLORPERAZINE
  18. IMDEVIMAB. [Suspect]
     Active Substance: IMDEVIMAB
     Indication: COVID-19
     Dosage: ?          OTHER FREQUENCY:ONCE;?
     Route: 042
  19. HYDROXYCHLOROQUINE [Concomitant]
     Active Substance: HYDROXYCHLOROQUINE
  20. IVIG [Concomitant]
     Active Substance: HUMAN IMMUNOGLOBULIN G
  21. LEVONORGESTREL. [Concomitant]
     Active Substance: LEVONORGESTREL
  22. LINACLOTIDE [Concomitant]
     Active Substance: LINACLOTIDE
  23. PREGABALIN. [Concomitant]
     Active Substance: PREGABALIN

REACTIONS (9)
  - Throat irritation [None]
  - Swollen tongue [None]
  - Headache [None]
  - Chest pain [None]
  - Dysphonia [None]
  - Lip swelling [None]
  - Myalgia [None]
  - Cough [None]
  - Chest discomfort [None]
